FAERS Safety Report 4625729-1 (Version None)
Quarter: 2005Q1

REPORT INFORMATION
  Report Type: 
  Country: None (occurrence: None)
  Receive Date: 20050330
  Receipt Date: 20050321
  Transmission Date: 20050727
  Serious: Yes (Death, Hospitalization)
  Sender: FDA-Public Use
  Company Number: 2004058861

PATIENT
  Age: 85 Year
  Sex: Male

DRUGS (3)
  1. NORVASC [Suspect]
     Indication: HYPERTENSION
     Dosage: (1 IN 1 D), ORAL
     Route: 048
     Dates: start: 19960101
  2. TICLOPIDINE HCL [Concomitant]
  3. ISOSORBIDE MONONITRATE [Concomitant]

REACTIONS (4)
  - ABDOMINAL PAIN UPPER [None]
  - DUODENAL ULCER [None]
  - GASTRIC HAEMORRHAGE [None]
  - PNEUMONIA [None]
